FAERS Safety Report 21211409 (Version 2)
Quarter: 2022Q4

REPORT INFORMATION
  Report Type: Report from Study
  Country: US (occurrence: US)
  Receive Date: 20220815
  Receipt Date: 20221020
  Transmission Date: 20230113
  Serious: Yes (Other)
  Sender: FDA-Public Use
  Company Number: US-NOVARTISTESTPH-NVSC2022US180870

PATIENT
  Age: 54 Year
  Sex: Female

DRUGS (2)
  1. KESIMPTA [Suspect]
     Active Substance: OFATUMUMAB
     Indication: Multiple sclerosis
     Dosage: 20 MG, QMO
     Route: 058
     Dates: start: 20220723
  2. PREDNISONE [Concomitant]
     Active Substance: PREDNISONE
     Indication: Multiple sclerosis
     Dosage: UNK
     Route: 065

REACTIONS (8)
  - Multiple sclerosis relapse [Not Recovered/Not Resolved]
  - Skin disorder [Not Recovered/Not Resolved]
  - Dysstasia [Not Recovered/Not Resolved]
  - Arthralgia [Not Recovered/Not Resolved]
  - Pain in extremity [Not Recovered/Not Resolved]
  - Paraesthesia [Not Recovered/Not Resolved]
  - Vision blurred [Not Recovered/Not Resolved]
  - Dyslexia [Not Recovered/Not Resolved]

NARRATIVE: CASE EVENT DATE: 20220723
